FAERS Safety Report 18137789 (Version 1)
Quarter: 2020Q3

REPORT INFORMATION
  Report Type: Report from Study
  Country: US (occurrence: US)
  Receive Date: 20200811
  Receipt Date: 20200811
  Transmission Date: 20201103
  Serious: Yes (Hospitalization)
  Sender: FDA-Public Use
  Company Number: US-UCBSA-2020031498

PATIENT
  Sex: Female

DRUGS (1)
  1. LEVETIRACETAM. [Suspect]
     Active Substance: LEVETIRACETAM
     Indication: SEIZURE
     Dosage: 1000 MG HALF TABLET TWO TIMES A DAY

REACTIONS (3)
  - Hospitalisation [Not Recovered/Not Resolved]
  - Wrong technique in product usage process [Unknown]
  - Gait inability [Not Recovered/Not Resolved]
